FAERS Safety Report 7755222-9 (Version None)
Quarter: 2011Q3

REPORT INFORMATION
  Report Type: 
  Country: None (occurrence: None)
  Receive Date: 20110914
  Receipt Date: 20110901
  Transmission Date: 20111222
  Serious: Yes (Life-Threatening, Hospitalization)
  Sender: FDA-Public Use
  Company Number: TCI2011A04038

PATIENT
  Age: 62 Year
  Sex: Male

DRUGS (6)
  1. PANTOSIN (PANTETHINE) [Concomitant]
  2. MAGNESIUM OXIDE [Concomitant]
  3. AMARYL [Concomitant]
  4. ACTOS [Suspect]
     Indication: DIABETES MELLITUS
     Dosage: 15 MG (15 MG, 1 IN 1 D) PER ORAL
     Route: 048
     Dates: start: 20100325, end: 20110701
  5. TANATRIL (IMIDAPRIL HYDROCHLORIDE) [Concomitant]
  6. BESASTAR SR (BEZAFIBRATE) [Concomitant]

REACTIONS (2)
  - BLADDER TRANSITIONAL CELL CARCINOMA [None]
  - CONSTIPATION [None]
